FAERS Safety Report 4977568-X (Version None)
Quarter: 2006Q2

REPORT INFORMATION
  Report Type: 
  Country: None (occurrence: None)
  Receive Date: 20060414
  Receipt Date: 20060403
  Transmission Date: 20061013
  Serious: No
  Sender: FDA-Public Use
  Company Number: 2006-140910-NL

PATIENT
  Age: 63 Year
  Sex: Female

DRUGS (5)
  1. MIRTAZAPINE [Suspect]
     Indication: DEPRESSION
     Dosage: DF
  2. GABAPENTIN [Suspect]
     Indication: PAIN
     Dosage: DF
     Dates: start: 20051223, end: 20060116
  3. ZOLPIDEM TARTRATE [Suspect]
     Dosage: DF
     Dates: end: 20060116
  4. ROXITHROMYCIN [Suspect]
     Indication: CHRONIC SINUSITIS
     Dosage: DF
     Dates: end: 20060115
  5. PROMETHAZINE HCL [Suspect]
     Indication: PRURITUS
     Dosage: 50 MG
     Dates: end: 20060116

REACTIONS (6)
  - AGITATION [None]
  - DYSKINESIA [None]
  - HEADACHE [None]
  - HYPERREFLEXIA [None]
  - HYPERTONIA [None]
  - SEROTONIN SYNDROME [None]
